FAERS Safety Report 14090688 (Version 1)
Quarter: 2017Q4

REPORT INFORMATION
  Report Type: Spontaneous
  Country: US (occurrence: US)
  Receive Date: 20171015
  Receipt Date: 20171015
  Transmission Date: 20180321
  Serious: Yes (Other)
  Sender: FDA-Public Use
  Company Number: US-SA-2017SA139330

PATIENT
  Age: 65 Year
  Sex: Female

DRUGS (9)
  1. LOSARTAN POTASSIUM. [Concomitant]
     Active Substance: LOSARTAN POTASSIUM
  2. VITAMIN D3 [Concomitant]
     Active Substance: CHOLECALCIFEROL
  3. AZOR [Concomitant]
     Active Substance: AMLODIPINE BESYLATE\OLMESARTAN MEDOXOMIL
  4. ASPIRIN. [Concomitant]
     Active Substance: ASPIRIN
     Indication: SINUS CONGESTION
  5. TYLENOL [Concomitant]
     Active Substance: ACETAMINOPHEN
  6. MELOXICAM. [Concomitant]
     Active Substance: MELOXICAM
  7. OSTEO BI-FLEX [Concomitant]
     Active Substance: CHONDROITIN SULFATE A\GLUCOSAMINE
  8. AUBAGIO [Suspect]
     Active Substance: TERIFLUNOMIDE
     Indication: MULTIPLE SCLEROSIS
     Route: 048
  9. ATORVASTATIN CALCIUM. [Concomitant]
     Active Substance: ATORVASTATIN CALCIUM

REACTIONS (4)
  - Multiple sclerosis relapse [Unknown]
  - Visual impairment [Unknown]
  - Paraesthesia [Unknown]
  - Fatigue [Unknown]
